FAERS Safety Report 18478001 (Version 1)
Quarter: 2020Q4

REPORT INFORMATION
  Report Type: Spontaneous
  Country: IT (occurrence: IT)
  Receive Date: 20201108
  Receipt Date: 20201108
  Transmission Date: 20210114
  Serious: Yes (Hospitalization, Other)
  Sender: FDA-Public Use
  Company Number: IT-AUROBINDO-AUR-APL-2020-054354

PATIENT
  Age: 71 Year
  Sex: Male

DRUGS (2)
  1. OXALIPLATIN. [Suspect]
     Active Substance: OXALIPLATIN
     Indication: ADENOCARCINOMA GASTRIC
     Dosage: 120 MILLIGRAM/SQ. METER, 5 CYCLE
     Route: 065
     Dates: start: 2018, end: 201902
  2. CAPECITABINE. [Suspect]
     Active Substance: CAPECITABINE
     Indication: ADENOCARCINOMA GASTRIC
     Dosage: 825 MILLIGRAM/SQ. METER, TWO TIMES A DAY FOR 14 DAYS IN A 21-DAYS CYCLE
     Route: 065
     Dates: start: 2018, end: 201902

REACTIONS (7)
  - Fatigue [Unknown]
  - Abdominal distension [Recovering/Resolving]
  - Hepatotoxicity [Recovering/Resolving]
  - Thrombocytopenia [Recovering/Resolving]
  - Hepatic necrosis [Recovering/Resolving]
  - Diarrhoea [Recovered/Resolved]
  - Hepatic infarction [Recovering/Resolving]

NARRATIVE: CASE EVENT DATE: 201902
